FAERS Safety Report 5634181-9 (Version None)
Quarter: 2008Q1

REPORT INFORMATION
  Report Type: 
  Country: None (occurrence: None)
  Receive Date: 20080221
  Receipt Date: 20080221
  Transmission Date: 20080703
  Serious: Yes (Disabling)
  Sender: FDA-Public Use
  Company Number: None

PATIENT
  Sex: Female

DRUGS (5)
  1. GEODON [Suspect]
     Indication: DELUSION
     Dosage: 80MG BID P.O.
     Route: 048
     Dates: start: 20080128, end: 20080130
  2. ATIVAN [Concomitant]
  3. MOTRIN [Concomitant]
  4. MAALOX [Concomitant]
  5. COGENTIN [Concomitant]

REACTIONS (5)
  - DYSTONIA [None]
  - MASKED FACIES [None]
  - MUSCLE SPASMS [None]
  - NUCHAL RIGIDITY [None]
  - TORTICOLLIS [None]
